FAERS Safety Report 19920831 (Version 2)
Quarter: 2021Q4

REPORT INFORMATION
  Report Type: Spontaneous
  Country: CH (occurrence: CH)
  Receive Date: 20211006
  Receipt Date: 20211111
  Transmission Date: 20220303
  Serious: Yes (Other)
  Sender: FDA-Public Use
  Company Number: None

PATIENT
  Age: 64 Year
  Sex: Male

DRUGS (5)
  1. MYCOPHENOLATE MOFETIL [Suspect]
     Active Substance: MYCOPHENOLATE MOFETIL
     Indication: Immunosuppressant drug therapy
     Dosage: 2 DOSAGE FORM, BID
     Route: 048
     Dates: start: 20180319, end: 20180924
  2. TACROLIMUS [Suspect]
     Active Substance: TACROLIMUS
     Indication: Immunosuppressant drug therapy
     Dosage: 8 MILLIGRAM, BID
     Route: 048
     Dates: start: 20180319, end: 201901
  3. PREDNISONE [Suspect]
     Active Substance: PREDNISONE
     Indication: Immunosuppressant drug therapy
     Dosage: 5 MILLIGRAM, OD
     Route: 048
     Dates: start: 20180319
  4. BASILIXIMAB [Suspect]
     Active Substance: BASILIXIMAB
     Indication: Immunosuppressant drug therapy
     Dosage: UNK
     Route: 065
     Dates: start: 201803
  5. VALGANCICLOVIR [Suspect]
     Active Substance: VALGANCICLOVIR
     Indication: Antiviral prophylaxis
     Dosage: 450 MILLIGRAM, EVERY TWO WEEK
     Route: 048
     Dates: start: 20180319, end: 20190313

REACTIONS (9)
  - Toxicity to various agents [Unknown]
  - Cytomegalovirus colitis [Recovered/Resolved]
  - Infection [Recovered/Resolved]
  - Leukopenia [Recovered/Resolved]
  - Diarrhoea [Recovered/Resolved]
  - Drug level increased [Recovered/Resolved]
  - Cytomegalovirus infection [Recovered/Resolved]
  - Viral infection [Recovered/Resolved]
  - Pathogen resistance [Recovered/Resolved]

NARRATIVE: CASE EVENT DATE: 20180101
